FAERS Safety Report 6222484-9 (Version None)
Quarter: 2009Q2

REPORT INFORMATION
  Report Type: 
  Country: None (occurrence: None)
  Receive Date: 20090608
  Receipt Date: 20090601
  Transmission Date: 20091009
  Serious: Yes (Hospitalization)
  Sender: FDA-Public Use
  Company Number: US-GENENTECH-284202

PATIENT
  Sex: Male

DRUGS (2)
  1. BEVACIZUMAB [Suspect]
     Indication: RENAL CELL CARCINOMA
     Dosage: 10 MG/KG, UNK
     Route: 042
     Dates: start: 20080616
  2. CCI-779 [Suspect]
     Indication: RENAL CELL CARCINOMA
     Dosage: 25 MG, UNK
     Route: 042
     Dates: start: 20080616

REACTIONS (1)
  - BLOOD CREATININE INCREASED [None]
